FAERS Safety Report 20770325 (Version 1)
Quarter: 2022Q2

REPORT INFORMATION
  Report Type: Spontaneous
  Country: CN (occurrence: CN)
  Receive Date: 20220429
  Receipt Date: 20220429
  Transmission Date: 20220721
  Serious: Yes (Other)
  Sender: FDA-Public Use
  Company Number: CN-ELI_LILLY_AND_COMPANY-CN202204009434

PATIENT
  Age: 41 Year
  Sex: Female
  Weight: 39 kg

DRUGS (2)
  1. BARICITINIB [Suspect]
     Active Substance: BARICITINIB
     Indication: Antisynthetase syndrome
     Dosage: 2 MG, DAILY
     Route: 048
     Dates: start: 20210701, end: 20220301
  2. BARICITINIB [Suspect]
     Active Substance: BARICITINIB
     Indication: Interstitial lung disease

REACTIONS (2)
  - Taste disorder [Recovering/Resolving]
  - Off label use [Recovering/Resolving]

NARRATIVE: CASE EVENT DATE: 20220201
